FAERS Safety Report 10687818 (Version 2)
Quarter: 2015Q1

REPORT INFORMATION
  Report Type: Spontaneous
  Country: US (occurrence: US)
  Receive Date: 20150102
  Receipt Date: 20150123
  Transmission Date: 20150720
  Serious: Yes (Other)
  Sender: FDA-Public Use
  Company Number: US-BAYER-2014-191183

PATIENT
  Age: 67 Year
  Sex: Male

DRUGS (3)
  1. LISINOPRIL. [Concomitant]
     Active Substance: LISINOPRIL
     Indication: BLOOD PRESSURE
  2. MOXIFLOXACIN ORAL [Suspect]
     Active Substance: MOXIFLOXACIN
     Indication: SINUSITIS
     Dosage: DAILY DOSE 400 MG
     Route: 048
     Dates: start: 20141219
  3. SINGULAIR [Concomitant]
     Active Substance: MONTELUKAST SODIUM
     Indication: DYSPNOEA

REACTIONS (19)
  - Bradyphrenia [None]
  - Disturbance in attention [None]
  - Asthenia [None]
  - Headache [None]
  - Fatigue [None]
  - Mental disorder [None]
  - Pain [None]
  - Nightmare [None]
  - Arthralgia [None]
  - Nausea [None]
  - Abdominal discomfort [None]
  - Mental impairment [None]
  - Aphagia [None]
  - Feeling abnormal [None]
  - Feeling abnormal [None]
  - Sleep disorder [None]
  - Aphasia [None]
  - Dizziness [None]
  - Paraesthesia [None]

NARRATIVE: CASE EVENT DATE: 201412
